FAERS Safety Report 4463804-5 (Version None)
Quarter: 2004Q4

REPORT INFORMATION
  Report Type: 
  Country: None (occurrence: None)
  Receive Date: 20041001
  Receipt Date: 20040924
  Transmission Date: 20050328
  Serious: Yes (Life-Threatening, Hospitalization, Other)
  Sender: FDA-Public Use
  Company Number: 200412909EU

PATIENT
  Age: 57 Year
  Sex: Female

DRUGS (7)
  1. LANTUS [Suspect]
     Indication: DIABETES MELLITUS
     Route: 058
     Dates: start: 20021126, end: 20030605
  2. NOVORAPID [Concomitant]
  3. STRUMAZOL [Concomitant]
  4. EFFEXOR [Concomitant]
  5. BROMAZEPAM [Concomitant]
  6. BUFLOMEDIL [Concomitant]
  7. TRIAZOLAM [Concomitant]

REACTIONS (3)
  - COLON CANCER [None]
  - GASTROINTESTINAL DISORDER [None]
  - ULCER [None]
